FAERS Safety Report 5743162-6 (Version None)
Quarter: 2008Q2

REPORT INFORMATION
  Report Type: 
  Country: None (occurrence: None)
  Receive Date: 20080519
  Receipt Date: 20080425
  Transmission Date: 20081010
  Serious: No
  Sender: FDA-Public Use
  Company Number: US-BOEHRINGER INGELHEIM GMBH, GERMANY-2008-BP-06642BP

PATIENT
  Age: 77 Year
  Sex: Female

DRUGS (4)
  1. AGGRENOX [Suspect]
     Indication: CAROTID ARTERY OCCLUSION
     Route: 048
     Dates: start: 20080214, end: 20080301
  2. AGGRENOX [Suspect]
     Indication: ANTICOAGULANT THERAPY
  3. LISINOPRIL [Concomitant]
     Indication: HYPERTENSION
  4. HYDROCHLOROTHIAZIDE [Concomitant]
     Indication: HYPERTENSION

REACTIONS (3)
  - DIZZINESS [None]
  - EPISTAXIS [None]
  - HEADACHE [None]
